FAERS Safety Report 9202355 (Version 1)
Quarter: 2013Q1

REPORT INFORMATION
  Report Type: Spontaneous
  Country: US (occurrence: None)
  Receive Date: 20130329
  Receipt Date: 20130329
  Transmission Date: 20140127
  Serious: Yes (Disabling)
  Sender: FDA-Public Use
  Company Number: None

PATIENT
  Age: 82 Year
  Sex: Male
  Weight: 100.7 kg

DRUGS (1)
  1. SOTALOL [Suspect]
     Indication: ATRIAL FIBRILLATION
     Route: 048
     Dates: start: 20130129, end: 20130211

REACTIONS (7)
  - Nausea [None]
  - Vomiting [None]
  - Fatigue [None]
  - Asthenia [None]
  - Dyspnoea [None]
  - Musculoskeletal pain [None]
  - Pain in extremity [None]
